FAERS Safety Report 20907658 (Version 1)
Quarter: 2022Q2

REPORT INFORMATION
  Report Type: Report from Study
  Country: EG (occurrence: EG)
  Receive Date: 20220602
  Receipt Date: 20220602
  Transmission Date: 20220721
  Serious: Yes (Other)
  Sender: FDA-Public Use
  Company Number: EG-NOVARTISPH-NVSC2022EG029163

PATIENT
  Age: 29 Year
  Sex: Female

DRUGS (7)
  1. GILENYA [Suspect]
     Active Substance: FINGOLIMOD HYDROCHLORIDE
     Indication: Multiple sclerosis
     Dosage: 0.5 MG, QD
     Route: 048
     Dates: start: 202011
  2. VIDROP [Concomitant]
     Indication: Tremor
     Dosage: 1-ONE BOTTLE ONCE WEEKLY
     Route: 048
     Dates: start: 202011
  3. VIDROP [Concomitant]
     Indication: Autonomic nervous system imbalance
  4. OSSOFORTIN [Concomitant]
     Indication: Tremor
     Dosage: 1 DOSAGE FORM, QD
     Route: 048
     Dates: start: 20220110
  5. OSSOFORTIN [Concomitant]
     Indication: Autonomic nervous system imbalance
  6. TOPAMAX [Concomitant]
     Active Substance: TOPIRAMATE
     Indication: Tremor
     Dosage: ONCE DAILY FOR ONE WEEK THEN TWICE DAILY
     Route: 048
     Dates: start: 20220110
  7. TOPAMAX [Concomitant]
     Active Substance: TOPIRAMATE
     Indication: Autonomic nervous system imbalance

REACTIONS (6)
  - Eye pain [Not Recovered/Not Resolved]
  - Headache [Not Recovered/Not Resolved]
  - White blood cell count decreased [Recovering/Resolving]
  - Hypotension [Unknown]
  - Sleep disorder [Unknown]
  - Product dispensing issue [Unknown]

NARRATIVE: CASE EVENT DATE: 20201101
